FAERS Safety Report 14836334 (Version 1)
Quarter: 2018Q2

REPORT INFORMATION
  Report Type: Spontaneous
  Country: PT (occurrence: PT)
  Receive Date: 20180502
  Receipt Date: 20180502
  Transmission Date: 20180711
  Serious: Yes (Life-Threatening, Hospitalization, Other)
  Sender: FDA-Public Use
  Company Number: PT-AUROBINDO-AUR-APL-2018-023021

PATIENT
  Age: 18 Month
  Sex: Male
  Weight: 10 kg

DRUGS (1)
  1. PARACETAMOL SOLUTION FOR INFUSION [Suspect]
     Active Substance: ACETAMINOPHEN
     Indication: PAIN
     Dosage: 10-15 MG/KG/DOSE, M?S 6/6 HORAS, P.O. 30 MINUTE
     Route: 042
     Dates: start: 20180410, end: 20180410

REACTIONS (2)
  - Dose calculation error [Recovered/Resolved]
  - Accidental overdose [Recovered/Resolved]

NARRATIVE: CASE EVENT DATE: 20180410
